FAERS Safety Report 13940453 (Version 2)
Quarter: 2017Q3

REPORT INFORMATION
  Report Type: Spontaneous
  Country: NL (occurrence: NL)
  Receive Date: 20170906
  Receipt Date: 20170912
  Transmission Date: 20171127
  Serious: Yes (Other)
  Sender: FDA-Public Use
  Company Number: NL-PFIZER INC-2017380252

PATIENT
  Age: 47 Year
  Sex: Male

DRUGS (15)
  1. VINCRISTINE SULFATE. [Suspect]
     Active Substance: VINCRISTINE SULFATE
     Indication: MANTLE CELL LYMPHOMA
     Dosage: UNK UNK, CYCLIC (NO OF UNITS IN THE INTERVAL:3) (R-CHOP)
  2. RITUXIMAB. [Suspect]
     Active Substance: RITUXIMAB
     Dosage: UNK (ADDITIONAL THREE COURSES)
  3. PREDNISONE. [Suspect]
     Active Substance: PREDNISONE
     Indication: MANTLE CELL LYMPHOMA
     Dosage: UNK, CYCLIC (NO OF UNITS IN THE INTERVAL:3) (HIGH-DOSE) (R-CHOP)
  4. IMIPENEM [Concomitant]
     Active Substance: IMIPENEM
     Indication: PYREXIA
     Dosage: UNK
  5. CYCLOPHOSPHAMIDE. [Suspect]
     Active Substance: CYCLOPHOSPHAMIDE
     Indication: MANTLE CELL LYMPHOMA
     Dosage: UNK, CYCLIC (NO OF UNITS IN THE INTERVAL:3) (R-CHOP)
  6. DOXORUBICIN HCL [Suspect]
     Active Substance: DOXORUBICIN HYDROCHLORIDE
     Indication: MANTLE CELL LYMPHOMA
     Dosage: UNK, CYCLIC (NO OF UNITS IN THE INTERVAL:3) (R-CHOP)
  7. DOXORUBICIN HCL [Suspect]
     Active Substance: DOXORUBICIN HYDROCHLORIDE
     Dosage: UNK (ADDITIONAL THREE COURSES)
  8. VORICONAZOLE. [Concomitant]
     Active Substance: VORICONAZOLE
     Indication: SYSTEMIC CANDIDA
     Dosage: UNK
  9. CYTARABINE. [Suspect]
     Active Substance: CYTARABINE
     Dosage: UNK (ADDITIONAL THREE COURSES)
  10. VINCRISTINE SULFATE. [Suspect]
     Active Substance: VINCRISTINE SULFATE
     Dosage: UNK (ADDITIONAL THREE COURSES)
  11. RITUXIMAB. [Suspect]
     Active Substance: RITUXIMAB
     Indication: MANTLE CELL LYMPHOMA
     Dosage: UNK, CYCLIC (NO OF UNITS IN THE INTERVAL:2) (HIGH DOSE) (R-CHOP)
  12. CYTARABINE. [Suspect]
     Active Substance: CYTARABINE
     Indication: MANTLE CELL LYMPHOMA
     Dosage: UNK, CYCLIC (NO OF UNITS IN THE INTERVAL:2) (HIGH-DOSE)
  13. CYCLOPHOSPHAMIDE. [Suspect]
     Active Substance: CYCLOPHOSPHAMIDE
     Dosage: UNK (ADDITIONAL THREE COURSES)
  14. PREDNISONE. [Suspect]
     Active Substance: PREDNISONE
     Dosage: UNK (ADDITIONAL THREE COURSES)
  15. RITUXIMAB. [Suspect]
     Active Substance: RITUXIMAB
     Dosage: UNK UNK, CYCLIC (NO OF UNITS IN THE INTERVAL:3) (R-CHOP)

REACTIONS (1)
  - Splenic candidiasis [Recovered/Resolved]
